FAERS Safety Report 8081219-8 (Version None)
Quarter: 2012Q1

REPORT INFORMATION
  Report Type: 
  Country: None (occurrence: None)
  Receive Date: 20120130
  Receipt Date: 20120124
  Transmission Date: 20120608
  Serious: No
  Sender: FDA-Public Use
  Company Number: US-PFIZER INC-2012020488

PATIENT
  Sex: Female
  Weight: 47.166 kg

DRUGS (2)
  1. PRISTIQ [Suspect]
     Indication: DEPRESSION
     Dosage: 50 MG, 1X/DAY
     Route: 048
     Dates: start: 20111201
  2. PRISTIQ [Suspect]
     Indication: SLEEP DISORDER

REACTIONS (4)
  - DRY MOUTH [None]
  - INSOMNIA [None]
  - DRUG INTOLERANCE [None]
  - CONSTIPATION [None]
